FAERS Safety Report 6635742-0 (Version None)
Quarter: 2010Q1

REPORT INFORMATION
  Report Type: 
  Country: None (occurrence: None)
  Receive Date: 20100309
  Receipt Date: 20100223
  Transmission Date: 20100710
  Serious: Yes (Hospitalization)
  Sender: FDA-Public Use
  Company Number: FABR-1001163

PATIENT
  Age: 50 Year
  Sex: Male
  Weight: 70 kg

DRUGS (1)
  1. FABRAZYME [Suspect]
     Indication: FABRY'S DISEASE
     Dosage: INTRAVENOUS
     Route: 042

REACTIONS (4)
  - COMMINUTED FRACTURE [None]
  - FOOT FRACTURE [None]
  - IMPAIRED HEALING [None]
  - LIMB TRAUMATIC AMPUTATION [None]
